FAERS Safety Report 24436452 (Version 1)
Quarter: 2024Q4

REPORT INFORMATION
  Report Type: Spontaneous
  Country: US (occurrence: US)
  Receive Date: 20241015
  Receipt Date: 20241015
  Transmission Date: 20250114
  Serious: No
  Sender: SANDOZ
  Company Number: US-GLAXOSMITHKLINE-USCH2023054255

PATIENT
  Sex: Female

DRUGS (1)
  1. VOLTAREN [Suspect]
     Active Substance: DICLOFENAC SODIUM
     Indication: Osteoarthritis
     Dosage: UNK, QD
     Route: 065

REACTIONS (4)
  - Dry eye [Unknown]
  - Hypersensitivity [Unknown]
  - Eczema [Unknown]
  - Inappropriate schedule of product administration [Unknown]
